FAERS Safety Report 4965533-8 (Version None)
Quarter: 2006Q1

REPORT INFORMATION
  Report Type: 
  Country: None (occurrence: None)
  Receive Date: 20060201
  Receipt Date: 20051206
  Transmission Date: 20060701
  Serious: No
  Sender: FDA-Public Use
  Company Number: 2005PV005483

PATIENT
  Age: 63 Year
  Sex: Male
  Weight: 154.223 kg

DRUGS (5)
  1. BYETTA [Suspect]
     Indication: DIABETES MELLITUS
     Dosage: 5 MCG; BID ; SC
     Route: 058
     Dates: start: 20051206
  2. GLUCOTROL XL [Concomitant]
  3. METFORMIN [Concomitant]
  4. ACTOS [Concomitant]
  5. LIPITOR [Concomitant]

REACTIONS (2)
  - BLOOD GLUCOSE INCREASED [None]
  - DRUG INEFFECTIVE [None]
